FAERS Safety Report 7494912-2 (Version None)
Quarter: 2011Q2

REPORT INFORMATION
  Report Type: 
  Country: None (occurrence: None)
  Receive Date: 20110520
  Receipt Date: 20110505
  Transmission Date: 20111010
  Serious: Yes (Other)
  Sender: FDA-Public Use
  Company Number: US-BAYER-2011-039928

PATIENT
  Age: 42 Year
  Sex: Female
  Weight: 48 kg

DRUGS (2)
  1. ASPIRIN [Suspect]
     Indication: CEREBROVASCULAR ACCIDENT
  2. ASPIRIN [Suspect]
     Indication: MENTAL DISORDER
     Dosage: TOOK 40-50 TABLETS, ONCE
     Dates: start: 20110504, end: 20110504

REACTIONS (4)
  - DIZZINESS [None]
  - FEELING COLD [None]
  - SOMNOLENCE [None]
  - ANXIETY [None]
